FAERS Safety Report 7173079-4 (Version None)
Quarter: 2010Q4

REPORT INFORMATION
  Report Type: 
  Country: None (occurrence: None)
  Receive Date: 20101219
  Receipt Date: 20100220
  Transmission Date: 20110411
  Serious: No
  Sender: FDA-Public Use
  Company Number: US-AMGEN-KDL394291

PATIENT

DRUGS (2)
  1. ENBREL [Suspect]
     Indication: RHEUMATOID ARTHRITIS
     Dosage: 50 MG, QWK
     Route: 058
     Dates: start: 20080519
  2. METHOTREXATE [Concomitant]

REACTIONS (5)
  - BRONCHOPNEUMONIA [None]
  - COCCYDYNIA [None]
  - INTERVERTEBRAL DISC DISORDER [None]
  - LIVER DISORDER [None]
  - RENAL DISORDER [None]
